FAERS Safety Report 6992922-2 (Version None)
Quarter: 2010Q3

REPORT INFORMATION
  Report Type: 
  Country: None (occurrence: None)
  Receive Date: 20100917
  Receipt Date: 20100907
  Transmission Date: 20110219
  Serious: Yes (Hospitalization)
  Sender: FDA-Public Use
  Company Number: DE-PFIZER INC-2010108028

PATIENT
  Age: 54 Year
  Sex: Female
  Weight: 50 kg

DRUGS (8)
  1. LYRICA [Suspect]
     Indication: EPILEPSY
     Dosage: 225 MG, 2X/DAY
     Route: 048
     Dates: start: 20090929, end: 20091101
  2. KEPPRA [Concomitant]
     Indication: EPILEPSY
     Dosage: 1000 MG, 2X/DAY
     Route: 048
     Dates: start: 20091101
  3. ASPIRIN [Concomitant]
     Dosage: 100 MG, 1X/DAY
     Route: 048
  4. METOPROLOL [Concomitant]
     Indication: HYPERTENSION
     Dosage: 50 MG, 1X/DAY
     Route: 048
     Dates: start: 20090829
  5. SIMVASTATIN [Concomitant]
     Indication: HYPERLIPIDAEMIA
     Dosage: 20 MG, 1X/DAY
     Route: 048
  6. FOLIC ACID [Concomitant]
     Indication: FOLATE DEFICIENCY
     Dosage: 5 MG, 1X/DAY
     Route: 048
  7. LAMOTRIGINE [Concomitant]
     Indication: EPILEPSY
     Dosage: 125 MG, 2X/DAY
     Route: 048
     Dates: start: 20060601
  8. LORAZEPAM [Concomitant]
     Indication: EPILEPSY
     Dosage: 0.5 MG, 3X/DAY
     Route: 048

REACTIONS (2)
  - EPILEPSY [None]
  - PARAPARESIS [None]
